FAERS Safety Report 21478156 (Version 1)
Quarter: 2022Q4

REPORT INFORMATION
  Report Type: Spontaneous
  Country: US (occurrence: None)
  Receive Date: 20221018
  Receipt Date: 20221018
  Transmission Date: 20230113
  Serious: Yes (Hospitalization)
  Sender: FDA-Public Use
  Company Number: None

PATIENT
  Age: 66 Year
  Sex: Female
  Weight: 74.8 kg

DRUGS (4)
  1. ERTAPENEM [Suspect]
     Active Substance: ERTAPENEM
     Indication: Sepsis
     Dosage: FREQUENCY : DAILY;?
     Route: 042
     Dates: start: 20220929, end: 20221011
  2. ERTAPENEM [Suspect]
     Active Substance: ERTAPENEM
     Indication: Gangrene
  3. ERTAPENEM [Suspect]
     Active Substance: ERTAPENEM
     Indication: Cellulitis
  4. OXYCODONE [Concomitant]
     Active Substance: OXYCODONE

REACTIONS (5)
  - Fall [None]
  - Confusional state [None]
  - Emotional disorder [None]
  - Hallucination [None]
  - Blood alkaline phosphatase increased [None]

NARRATIVE: CASE EVENT DATE: 20221011
